FAERS Safety Report 9505917 (Version 1)
Quarter: 2013Q1

REPORT INFORMATION
  Report Type: Spontaneous
  Country: US (occurrence: None)
  Receive Date: 20130214
  Receipt Date: 20130214
  Transmission Date: 20140127
  Serious: Yes (Other)
  Sender: FDA-Public Use
  Company Number: 2012-123

PATIENT
  Age: 39 Year
  Sex: Female
  Weight: 49 kg

DRUGS (1)
  1. ELESTRIN [Suspect]
     Dosage: 2 PUMP
     Route: 061
     Dates: start: 201201

REACTIONS (4)
  - Oedema peripheral [None]
  - Pain in extremity [None]
  - Fluid retention [None]
  - Weight increased [None]
